FAERS Safety Report 4853222-X (Version None)
Quarter: 2005Q4

REPORT INFORMATION
  Report Type: 
  Country: None (occurrence: None)
  Receive Date: 20051214
  Receipt Date: 20051208
  Transmission Date: 20060501
  Serious: Yes (Disabling, Other)
  Sender: FDA-Public Use
  Company Number: DE-AVENTIS-200512847DE

PATIENT
  Age: 70 Year
  Sex: Male
  Weight: 79 kg

DRUGS (5)
  1. DOCETAXEL [Suspect]
     Indication: PROSTATE CANCER
     Route: 042
     Dates: start: 20051117, end: 20051117
  2. VOTUM [Concomitant]
     Indication: HYPERTENSION
  3. ENALAPRIL [Concomitant]
     Indication: HYPERTENSION
  4. FERRO /OLD FORM/ ^SANOL^ [Concomitant]
     Indication: ANAEMIA
  5. NEXIUM [Concomitant]
     Indication: GASTRITIS

REACTIONS (2)
  - DYSKINESIA [None]
  - RESTLESS LEGS SYNDROME [None]
